FAERS Safety Report 5294534-8 (Version None)
Quarter: 2007Q2

REPORT INFORMATION
  Report Type: 
  Country: None (occurrence: None)
  Receive Date: 20070412
  Receipt Date: 20070402
  Transmission Date: 20071010
  Serious: Yes (Hospitalization)
  Sender: FDA-Public Use
  Company Number: CA-JNJFOC-20070400470

PATIENT

DRUGS (1)
  1. TRAMADOL HCL [Suspect]
     Indication: PAIN
     Route: 048

REACTIONS (8)
  - ASTHENIA [None]
  - HEADACHE [None]
  - HYPERAESTHESIA [None]
  - HYPERHIDROSIS [None]
  - NAUSEA [None]
  - PERIPHERAL VASCULAR DISORDER [None]
  - PRURITUS [None]
  - VOMITING [None]
